FAERS Safety Report 4453344-1 (Version None)
Quarter: 2004Q3

REPORT INFORMATION
  Report Type: 
  Country: None (occurrence: None)
  Receive Date: 20040920
  Receipt Date: 20040916
  Transmission Date: 20050211
  Serious: Yes (Life-Threatening, Hospitalization)
  Sender: FDA-Public Use
  Company Number: PHFR2004GB03476

PATIENT
  Age: 75 Year
  Sex: Female

DRUGS (6)
  1. DICLOFENAC [Suspect]
     Indication: OSTEOARTHRITIS
     Dosage: 50 MG, TID
     Route: 048
     Dates: start: 20020101, end: 20040604
  2. ASPIRIN [Suspect]
     Indication: PAIN
     Dosage: 75MG/OM
     Route: 048
     Dates: start: 19880101, end: 20040604
  3. QUININE SULPHATE [Concomitant]
     Indication: MUSCLE CRAMP
     Dosage: 300 MG, BID
     Route: 048
  4. ALBUTEROL [Concomitant]
     Indication: ASTHMA
     Dosage: 200 UG, PRN
  5. SIMVASTATIN [Concomitant]
     Indication: BLOOD CHOLESTEROL INCREASED
     Dosage: 10MG/ON
     Route: 048
  6. ALENDRONATE SODIUM [Concomitant]
     Indication: OSTEOPOROSIS
     Dosage: 70MG/DAY
     Route: 048

REACTIONS (8)
  - ANKLE FRACTURE [None]
  - CIRCULATORY COLLAPSE [None]
  - DUODENITIS [None]
  - FALL [None]
  - GASTROINTESTINAL HAEMORRHAGE [None]
  - HAEMOGLOBIN DECREASED [None]
  - HYPOTENSION [None]
  - UPPER GASTROINTESTINAL HAEMORRHAGE [None]
